FAERS Safety Report 20495382 (Version 8)
Quarter: 2023Q4

REPORT INFORMATION
  Report Type: Spontaneous
  Country: US (occurrence: US)
  Receive Date: 20220221
  Receipt Date: 20231023
  Transmission Date: 20240109
  Serious: Yes (Other)
  Sender: FDA-Public Use
  Company Number: US-PFIZER INC-2020213017

PATIENT
  Age: 65 Year
  Sex: Male

DRUGS (4)
  1. RETACRIT [Suspect]
     Active Substance: EPOETIN ALFA-EPBX
     Indication: Congenital dyserythropoietic anaemia
     Dosage: 40000 IU
  2. RETACRIT [Suspect]
     Active Substance: EPOETIN ALFA-EPBX
     Indication: Acute kidney injury
     Dosage: 40000 IU, 2 WEEKS
     Route: 058
  3. RETACRIT [Suspect]
     Active Substance: EPOETIN ALFA-EPBX
     Indication: Nephrogenic anaemia
     Dosage: 40000 IU, EVERY 2 WEEKS, TO BE ADMINISTERED IN MD OFFICE
     Route: 058
  4. RETACRIT [Suspect]
     Active Substance: EPOETIN ALFA-EPBX
     Indication: Haemoglobin decreased

REACTIONS (2)
  - Suicidal behaviour [Unknown]
  - Off label use [Unknown]
